FAERS Safety Report 18033713 (Version 1)
Quarter: 2020Q3

REPORT INFORMATION
  Report Type: Spontaneous
  Country: GB (occurrence: GB)
  Receive Date: 20200716
  Receipt Date: 20200716
  Transmission Date: 20201103
  Serious: Yes (Other)
  Sender: FDA-Public Use
  Company Number: GB-MYLANLABS-2020M1063628

PATIENT
  Age: 47 Year
  Sex: Male

DRUGS (1)
  1. SEMGLEE [Suspect]
     Active Substance: INSULIN GLARGINE
     Indication: DIABETES MELLITUS
     Dosage: I INJECT IN MY BUTTOCKS DAILY. 1OO UNITS PER INSULIN PEN.
     Route: 030
     Dates: start: 20200416, end: 20200604

REACTIONS (2)
  - Irritable bowel syndrome [Recovered/Resolved]
  - Frequent bowel movements [Unknown]

NARRATIVE: CASE EVENT DATE: 2020
